FAERS Safety Report 14879603 (Version 3)
Quarter: 2018Q2

REPORT INFORMATION
  Report Type: Spontaneous
  Country: US (occurrence: US)
  Receive Date: 20180511
  Receipt Date: 20180613
  Transmission Date: 20180711
  Serious: Yes (Disabling, Other)
  Sender: FDA-Public Use
  Company Number: US-REGENERON PHARMACEUTICALS, INC.-2018-22895

PATIENT

DRUGS (2)
  1. EYLEA [Suspect]
     Active Substance: AFLIBERCEPT
     Indication: RETINAL VEIN OCCLUSION
     Dosage: 2 MG/ 0.05 ML, OS, EVERY 5 WEEKS
     Route: 031
     Dates: start: 20170512
  2. EYLEA [Suspect]
     Active Substance: AFLIBERCEPT
     Indication: MACULAR OEDEMA
     Dosage: 2 MG/ 0.05 ML, OS, EVERY 5 WEEKS
     Route: 031
     Dates: start: 20180501, end: 20180501

REACTIONS (4)
  - Conjunctivitis bacterial [Recovered/Resolved]
  - Bacterial blepharitis [Recovered/Resolved]
  - Blindness unilateral [Not Recovered/Not Resolved]
  - Wrong technique in product usage process [Unknown]

NARRATIVE: CASE EVENT DATE: 20180417
